FAERS Safety Report 5520619-4 (Version None)
Quarter: 2007Q4

REPORT INFORMATION
  Report Type: 
  Country: None (occurrence: None)
  Receive Date: 20071119
  Receipt Date: 20071106
  Transmission Date: 20080405
  Serious: Yes (Death, Life-Threatening, Hospitalization)
  Sender: FDA-Public Use
  Company Number: JP-PFIZER INC-2007090955

PATIENT
  Age: 83 Year
  Sex: Male

DRUGS (12)
  1. ESTRACYT [Suspect]
     Indication: PROSTATE CANCER
     Dosage: DAILY DOSE:156.7MG
     Route: 048
     Dates: start: 20070404, end: 20071019
  2. CARVEDILOL [Concomitant]
  3. ACETYLSALICYLIC ACID SRT [Concomitant]
     Dates: end: 20071027
  4. AMLODIPINE BESYLATE [Concomitant]
     Dates: end: 20071027
  5. DIAZEPAM [Concomitant]
     Dates: end: 20071027
  6. GLIMEPIRIDE [Concomitant]
     Dates: end: 20071027
  7. PRAVASTATIN SODIUM [Concomitant]
     Dates: end: 20071027
  8. BENZBROMARONE [Concomitant]
     Dates: end: 20071027
  9. LACTOMIN [Concomitant]
     Dates: end: 20071027
  10. DILTIAZEM HYDROCHLORIDE [Concomitant]
     Dates: start: 20060623, end: 20071027
  11. METOCLOPRAMIDE [Concomitant]
     Dates: start: 20070404, end: 20071019
  12. LEUPROLIDE ACETATE [Concomitant]
     Dates: start: 20050527, end: 20070725

REACTIONS (1)
  - INTERSTITIAL LUNG DISEASE [None]
